FAERS Safety Report 8360689-1 (Version None)
Quarter: 2012Q2

REPORT INFORMATION
  Report Type: 
  Country: None (occurrence: None)
  Receive Date: 20120515
  Receipt Date: 20120507
  Transmission Date: 20120825
  Serious: Yes (Hospitalization, Other)
  Sender: FDA-Public Use
  Company Number: US-ACTELION-A-CH2012-65548

PATIENT
  Age: 4 Year
  Sex: Male

DRUGS (3)
  1. EPOPROSTENOL SODIUM [Concomitant]
     Route: 042
  2. DIURETICS [Concomitant]
  3. TRACLEER [Suspect]
     Indication: PULMONARY ARTERIAL HYPERTENSION
     Dosage: UNK
     Route: 048

REACTIONS (14)
  - PLEURAL EFFUSION [None]
  - ATELECTASIS [None]
  - MECHANICAL VENTILATION [None]
  - PYREXIA [None]
  - PLEURAL DECORTICATION [None]
  - HEART AND LUNG TRANSPLANT [None]
  - DIAPHRAGMATIC PARALYSIS [None]
  - ASPIRATION [None]
  - RESPIRATORY FAILURE [None]
  - LUNG INFILTRATION [None]
  - VOCAL CORD PARALYSIS [None]
  - COMPLICATIONS OF TRANSPLANTED LUNG [None]
  - BIOPSY LUNG [None]
  - PNEUMONIA [None]
